FAERS Safety Report 12916368 (Version 1)
Quarter: 2016Q4

REPORT INFORMATION
  Report Type: Spontaneous
  Country: US (occurrence: US)
  Receive Date: 20161103
  Receipt Date: 20161103
  Transmission Date: 20170207
  Serious: Yes (Other)
  Sender: FDA-Public Use
  Company Number: None

PATIENT
  Age: 62 Year
  Sex: Male
  Weight: 123.75 kg

DRUGS (17)
  1. TESTOSTERONE CYPIONATE INJECTION [Suspect]
     Active Substance: TESTOSTERONE CYPIONATE
     Indication: HYPOGONADISM
     Dosage: 1.5ML EVERY 10 DAY; INJECTION INTO MUSCLE?
     Route: 030
  2. HYDROCODONE [Concomitant]
     Active Substance: HYDROCODONE
  3. DEPO-TESTOSTERONE [Concomitant]
     Active Substance: TESTOSTERONE CYPIONATE
  4. GENERIC OVER 60 DAILY VITAMIN [Concomitant]
  5. LEVOTHYROXINE. [Concomitant]
     Active Substance: LEVOTHYROXINE
  6. MORPHINE SULFATE ER [Concomitant]
     Active Substance: MORPHINE SULFATE
  7. IRBESARTAN. [Concomitant]
     Active Substance: IRBESARTAN
  8. ALLOPURINOL. [Concomitant]
     Active Substance: ALLOPURINOL
  9. HUMALOG [Concomitant]
     Active Substance: INSULIN LISPRO
  10. AREDS 2 VITAMIN [Concomitant]
  11. LANTUS SOLOSTAR [Concomitant]
     Active Substance: INSULIN GLARGINE
  12. VITAMIN D2 [Concomitant]
     Active Substance: ERGOCALCIFEROL
  13. APAP [Concomitant]
     Active Substance: ACETAMINOPHEN
  14. OMEGA 3 [Concomitant]
     Active Substance: OMEGA-3 FATTY ACIDS
  15. INVOKANA [Concomitant]
     Active Substance: CANAGLIFLOZIN
  16. BYETTA [Concomitant]
     Active Substance: EXENATIDE
  17. MAGNESIUM [Concomitant]
     Active Substance: MAGNESIUM

REACTIONS (4)
  - Product supply issue [None]
  - Fatigue [None]
  - Incorrect product storage [None]
  - Hypersomnia [None]

NARRATIVE: CASE EVENT DATE: 20160818
